FAERS Safety Report 5400168-4 (Version None)
Quarter: 2007Q3

REPORT INFORMATION
  Report Type: 
  Country: None (occurrence: None)
  Receive Date: 20070730
  Receipt Date: 20070718
  Transmission Date: 20080115
  Serious: Yes (Hospitalization)
  Sender: FDA-Public Use
  Company Number: SE-AMGEN-UK235528

PATIENT
  Age: 77 Year
  Sex: Female

DRUGS (3)
  1. NEUPOGEN [Suspect]
     Indication: DRUG USE FOR UNKNOWN INDICATION
     Route: 065
     Dates: start: 20070512
  2. FLUCONAZOLE [Concomitant]
  3. ACETAMINOPHEN [Concomitant]

REACTIONS (1)
  - BACK PAIN [None]
